FAERS Safety Report 5134658-9 (Version None)
Quarter: 2006Q4

REPORT INFORMATION
  Report Type: 
  Country: None (occurrence: None)
  Receive Date: 20061025
  Receipt Date: 20061017
  Transmission Date: 20070319
  Serious: Yes (Hospitalization)
  Sender: FDA-Public Use
  Company Number: EG-GLAXOSMITHKLINE-B0443473A

PATIENT
  Age: 2 Year
  Sex: Female

DRUGS (1)
  1. AUGMENTIN '125' [Suspect]
     Dates: start: 20061010, end: 20061013

REACTIONS (3)
  - DEHYDRATION [None]
  - GASTRIC HAEMORRHAGE [None]
  - VOMITING [None]
